FAERS Safety Report 20613410 (Version 2)
Quarter: 2022Q2

REPORT INFORMATION
  Report Type: Spontaneous
  Country: US (occurrence: US)
  Receive Date: 20220319
  Receipt Date: 20220429
  Transmission Date: 20220721
  Serious: Yes (Other)
  Sender: FDA-Public Use
  Company Number: US-SA-SAC20220314000013

PATIENT
  Age: 53 Year
  Sex: Female

DRUGS (2)
  1. ZANTAC [Suspect]
     Active Substance: RANITIDINE HYDROCHLORIDE
     Indication: Abdominal discomfort
     Dosage: 75 MG,FREQUENCY: OCCASIONAL
     Dates: start: 198601, end: 201903
  2. ZANTAC [Suspect]
     Active Substance: RANITIDINE HYDROCHLORIDE
     Indication: Dyspepsia

REACTIONS (6)
  - Bladder cancer stage IV [Not Recovered/Not Resolved]
  - Gastrointestinal carcinoma [Not Recovered/Not Resolved]
  - Hepatic cancer stage IV [Not Recovered/Not Resolved]
  - Ovarian cancer stage IV [Not Recovered/Not Resolved]
  - Fallopian tube cancer stage IV [Not Recovered/Not Resolved]
  - Appendix cancer [Not Recovered/Not Resolved]

NARRATIVE: CASE EVENT DATE: 20190201
